FAERS Safety Report 4763745-X (Version None)
Quarter: 2005Q3

REPORT INFORMATION
  Report Type: 
  Country: None (occurrence: None)
  Receive Date: 20050908
  Receipt Date: 20050112
  Transmission Date: 20060218
  Serious: Yes (Hospitalization)
  Sender: FDA-Public Use
  Company Number: US-SANOFI-SYNTHELABO-A03200500119

PATIENT
  Sex: Female
  Weight: 61.2 kg

DRUGS (2)
  1. AMBIEN [Suspect]
     Indication: INSOMNIA
     Route: 048
     Dates: start: 20010101, end: 20050101
  2. LIPITOR [Concomitant]
     Dosage: UNK
     Route: 048

REACTIONS (4)
  - CONCUSSION [None]
  - CONTUSION [None]
  - FALL [None]
  - NIGHTMARE [None]
